FAERS Safety Report 8820719 (Version 3)
Quarter: 2012Q4

REPORT INFORMATION
  Report Type: 
  Country: US (occurrence: US)
  Receive Date: 20121002
  Receipt Date: 20121227
  Transmission Date: 20130627
  Serious: Yes (Hospitalization, Other)
  Sender: FDA-Public Use
  Company Number: PHEH2012US019056

PATIENT
  Age: 53 Year
  Sex: Female
  Weight: 61.68 kg

DRUGS (9)
  1. GILENYA [Suspect]
     Indication: MULTIPLE SCLEROSIS
     Dosage: 0.5 mg, QD
     Route: 048
     Dates: start: 20120926
  2. LOSARTAN [Concomitant]
     Dosage: 100 mg, daily
  3. PREMARIN [Concomitant]
     Dosage: 0.3 mg,daily
  4. PROVIGIL [Concomitant]
     Dosage: 200 mg, BID
  5. GABAPENTIN [Concomitant]
     Dosage: 3 DF, TID
  6. PROTONIX [Concomitant]
     Dosage: 40 mg, daily
  7. TOPIRAMATE [Concomitant]
     Dosage: 25 mg, QHS
  8. PROVENTIL [Concomitant]
     Dosage: 2 puffs, Q4H
  9. SYMBICORT [Concomitant]
     Dosage: 160/4.5, 2 puff BID

REACTIONS (7)
  - Bradycardia [Unknown]
  - Chest discomfort [Unknown]
  - Electrocardiogram abnormal [Unknown]
  - Electrocardiogram QT prolonged [Recovered/Resolved]
  - Cardiac disorder [Unknown]
  - Left ventricular hypertrophy [Unknown]
  - Blood pressure increased [Unknown]
